APPROVED DRUG PRODUCT: ORSYTHIA
Active Ingredient: ETHINYL ESTRADIOL; LEVONORGESTREL
Strength: 0.02MG;0.1MG
Dosage Form/Route: TABLET;ORAL-28
Application: A077099 | Product #001
Applicant: PH HEALTH LTD
Approved: May 11, 2011 | RLD: No | RS: No | Type: DISCN